FAERS Safety Report 23737138 (Version 4)
Quarter: 2024Q3

REPORT INFORMATION
  Report Type: Report from Study
  Country: CA (occurrence: CA)
  Receive Date: 20240412
  Receipt Date: 20240726
  Transmission Date: 20241017
  Serious: Yes (Other)
  Sender: UCB
  Company Number: CA-UCBSA-2023060410

PATIENT
  Age: 28 Year
  Sex: Female

DRUGS (3)
  1. CERTOLIZUMAB PEGOL [Suspect]
     Active Substance: CERTOLIZUMAB PEGOL
     Indication: Rheumatoid arthritis
     Dosage: 400 MILLIGRAM, EV 2 WEEKS(QOW) X 3
     Route: 058
     Dates: start: 20231217
  2. CERTOLIZUMAB PEGOL [Suspect]
     Active Substance: CERTOLIZUMAB PEGOL
     Dosage: 200 MILLIGRAM, EV 2 WEEKS(QOW)
     Route: 058
  3. CERTOLIZUMAB PEGOL [Suspect]
     Active Substance: CERTOLIZUMAB PEGOL
     Dosage: 200 MILLIGRAM Q 10 DAYS
     Route: 058
     Dates: start: 20240418, end: 20240723

REACTIONS (8)
  - Rheumatoid arthritis [Unknown]
  - Injection site pain [Unknown]
  - Pain in extremity [Recovering/Resolving]
  - Alopecia [Unknown]
  - Psoriasis [Unknown]
  - General physical health deterioration [Unknown]
  - Off label use [Unknown]
  - Drug ineffective [Unknown]

NARRATIVE: CASE EVENT DATE: 20231217
